FAERS Safety Report 6418354-3 (Version None)
Quarter: 2009Q4

REPORT INFORMATION
  Report Type: 
  Country: None (occurrence: None)
  Receive Date: 20091026
  Receipt Date: 20090720
  Transmission Date: 20100525
  Serious: No
  Sender: FDA-Public Use
  Company Number: US-000734

PATIENT
  Sex: Male

DRUGS (5)
  1. DEGARELIX  (120 MG, 80 MG) [Suspect]
     Dosage: (SUBCUTANEOUS), (SUBCUTANEOUS)
     Route: 058
     Dates: start: 20090401, end: 20090501
  2. NORVASC [Concomitant]
  3. NITROGLYCERIN [Concomitant]
  4. ISOSORBIDE MONONITRATE [Concomitant]
  5. FLOMAX /0180302/ [Concomitant]

REACTIONS (1)
  - HOT FLUSH [None]
